FAERS Safety Report 7602278-X (Version None)
Quarter: 2011Q3

REPORT INFORMATION
  Report Type: 
  Country: None (occurrence: None)
  Receive Date: 20110711
  Receipt Date: 20110629
  Transmission Date: 20111222
  Serious: No
  Sender: FDA-Public Use
  Company Number: US-ROXANE LABORATORIES, INC.-2011-RO-00960RO

PATIENT
  Sex: Female

DRUGS (2)
  1. PREDNISONE [Suspect]
     Indication: ANAEMIA
     Dosage: 10 MG
     Route: 048
  2. MULTI-VITAMIN [Concomitant]

REACTIONS (1)
  - DRY MOUTH [None]
